FAERS Safety Report 4755939-4 (Version None)
Quarter: 2005Q3

REPORT INFORMATION
  Report Type: 
  Country: None (occurrence: None)
  Receive Date: 20050830
  Receipt Date: 20050817
  Transmission Date: 20060218
  Serious: Yes (Other)
  Sender: FDA-Public Use
  Company Number: 2005UW12345

PATIENT
  Age: 50 Year
  Sex: Female

DRUGS (4)
  1. NEXIUM [Suspect]
     Indication: STOMACH DISCOMFORT
     Route: 048
     Dates: start: 20050601, end: 20050801
  2. NEXIUM [Suspect]
     Route: 048
     Dates: start: 20050801
  3. ATIVAN [Concomitant]
  4. ATIVAN [Concomitant]
     Dates: start: 20050801

REACTIONS (10)
  - ABDOMINAL PAIN [None]
  - DIARRHOEA [None]
  - DIZZINESS [None]
  - DRUG INEFFECTIVE [None]
  - DRY MOUTH [None]
  - FLATULENCE [None]
  - HAEMATEMESIS [None]
  - HEADACHE [None]
  - NAUSEA [None]
  - TREMOR [None]
